FAERS Safety Report 4852506-9 (Version None)
Quarter: 2005Q4

REPORT INFORMATION
  Report Type: 
  Country: None (occurrence: None)
  Receive Date: 20051213
  Receipt Date: 20050923
  Transmission Date: 20060501
  Serious: Yes (Death, Other)
  Sender: FDA-Public Use
  Company Number: PHFR2005GB03195

PATIENT
  Weight: 97 kg

DRUGS (10)
  1. PREDNISOLONE [Concomitant]
     Dosage: 40MG/OM
     Route: 065
  2. PARACETAMOL [Concomitant]
     Dosage: 1 G, QID
     Route: 065
  3. BENDROFLUMETHIAZIDE [Concomitant]
     Dosage: 2.5MG/OM
     Route: 065
  4. LANSOPRAZOLE [Concomitant]
     Route: 065
  5. WARFARIN SODIUM [Concomitant]
     Indication: ATRIAL FIBRILLATION
     Route: 065
  6. SALBUTAMOL [Concomitant]
     Dosage: UNK, PRN
  7. BECLOMETHASONE AQUEOUS [Concomitant]
  8. FLUCLOXACILLIN [Concomitant]
     Dosage: 1 G, QID
     Route: 065
  9. OXYNORM [Concomitant]
     Route: 065
  10. NEORAL [Suspect]
     Indication: PYODERMA GANGRENOSUM
     Dosage: 250 MG, BID
     Route: 065
     Dates: start: 20050824, end: 20050901

REACTIONS (3)
  - BLOOD CREATININE INCREASED [None]
  - DEATH [None]
  - RENAL FAILURE ACUTE [None]
